FAERS Safety Report 8182423-0 (Version None)
Quarter: 2012Q1

REPORT INFORMATION
  Report Type: 
  Country: None (occurrence: None)
  Receive Date: 20120305
  Receipt Date: 20120222
  Transmission Date: 20120608
  Serious: Yes (Hospitalization, Other)
  Sender: FDA-Public Use
  Company Number: US-PAR PHARMACEUTICAL, INC-2012SCPR004246

PATIENT

DRUGS (1)
  1. LUBIPROSTONE [Suspect]
     Indication: CONSTIPATION
     Dosage: 1 CAPSULE ONCE IN THE MORNING AND ONCE IN EVENING WITH FOOD AND 8 OZ OF WATER
     Route: 048
     Dates: end: 20120220

REACTIONS (2)
  - PELVIC FRACTURE [None]
  - FALL [None]
